FAERS Safety Report 4393493-X (Version None)
Quarter: 2004Q3

REPORT INFORMATION
  Report Type: 
  Country: None (occurrence: None)
  Receive Date: 20040707
  Receipt Date: 20040707
  Transmission Date: 20050211
  Serious: Yes (Death, Life-Threatening, Hospitalization, Disabling, Other)
  Sender: FDA-Public Use
  Company Number: None

PATIENT
  Sex: Female
  Weight: 63.5036 kg

DRUGS (7)
  1. AVELOX [Suspect]
     Indication: BRONCHITIS
     Dosage: 1 TABLET DAILY ORAL
     Route: 048
     Dates: start: 20040602, end: 20040606
  2. PROMETHAZINE [Suspect]
     Indication: BRONCHITIS
     Dosage: 1 TEASPOON EV. 6 HRS ORAL
     Route: 048
     Dates: start: 20040602, end: 20040605
  3. PROMETHAZINE [Suspect]
     Indication: COUGH
     Dosage: 1 TEASPOON EV. 6 HRS ORAL
     Route: 048
     Dates: start: 20040602, end: 20040605
  4. LEVATHROID [Concomitant]
  5. ASPIRIN [Concomitant]
  6. IMIPRAMINE [Concomitant]
  7. INDAPAMIDE [Concomitant]

REACTIONS (9)
  - ABASIA [None]
  - ASTHENIA [None]
  - DYSPHAGIA [None]
  - FALL [None]
  - HYPONATRAEMIA [None]
  - INCONTINENCE [None]
  - MARKEDLY REDUCED DIETARY INTAKE [None]
  - MEMORY IMPAIRMENT [None]
  - VOMITING [None]
